FAERS Safety Report 7286207-7 (Version None)
Quarter: 2011Q1

REPORT INFORMATION
  Report Type: 
  Country: None (occurrence: None)
  Receive Date: 20110210
  Receipt Date: 20110131
  Transmission Date: 20110831
  Serious: Yes (Hospitalization, Other)
  Sender: FDA-Public Use
  Company Number: PHEH2007US12158

PATIENT
  Sex: Male

DRUGS (24)
  1. PREDNISONE TAB [Concomitant]
     Dosage: UNK
  2. VICODIN [Concomitant]
  3. OXYCONTIN [Concomitant]
     Dosage: UNK
  4. ZOMETA [Suspect]
     Dosage: UNK
     Dates: start: 20031126, end: 20070820
  5. LOPURIN [Concomitant]
     Dosage: UNK
  6. COUMADIN [Concomitant]
     Dosage: UNK
  7. VENOFER [Concomitant]
  8. CASODEX [Concomitant]
  9. SOLU-MEDROL [Concomitant]
  10. ASPIRIN [Concomitant]
  11. NILANDRON [Concomitant]
     Dosage: UNK
  12. LOVENOX [Concomitant]
  13. DAPTOMYCIN [Concomitant]
  14. BACLOFEN [Concomitant]
  15. LEVAQUIN [Concomitant]
  16. BENADRYL ^ACHE^ [Concomitant]
  17. ZITHROMAX [Concomitant]
     Dosage: UNK
  18. LASIX [Concomitant]
     Dosage: UNK
  19. OXYCODONE HCL [Concomitant]
  20. NEURONTIN [Concomitant]
  21. FENTANYL [Concomitant]
     Dosage: 50 UG, UNK
  22. VANCOMYCIN [Concomitant]
  23. ARANESP [Concomitant]
     Dosage: UNK
  24. CIPRO [Concomitant]

REACTIONS (53)
  - WALKING DISABILITY [None]
  - MUSCULAR WEAKNESS [None]
  - IMMOBILE [None]
  - OSTEOPOROSIS [None]
  - NAUSEA [None]
  - ISCHAEMIA [None]
  - CACHEXIA [None]
  - OSTEOARTHRITIS [None]
  - MASS [None]
  - CEREBROVASCULAR ACCIDENT [None]
  - PNEUMONIA [None]
  - LEUKOCYTURIA [None]
  - HYPOKALAEMIA [None]
  - ATRIAL FIBRILLATION [None]
  - DIPLEGIA [None]
  - CONSTIPATION [None]
  - GASTROINTESTINAL HAEMORRHAGE [None]
  - INTERVERTEBRAL DISC PROTRUSION [None]
  - OSTEONECROSIS OF JAW [None]
  - PAIN [None]
  - MEMORY IMPAIRMENT [None]
  - PAIN IN EXTREMITY [None]
  - FAILURE TO THRIVE [None]
  - VITAMIN D DECREASED [None]
  - CARDIOMEGALY [None]
  - TOOTH INFECTION [None]
  - MALNUTRITION [None]
  - THROMBOPHLEBITIS [None]
  - ONYCHOMYCOSIS [None]
  - INFECTION [None]
  - GASTROINTESTINAL MOTILITY DISORDER [None]
  - LUNG INFILTRATION [None]
  - ESCHERICHIA SEPSIS [None]
  - FIBROMYALGIA [None]
  - VOMITING [None]
  - TESTIS CANCER [None]
  - CEREBRAL INFARCTION [None]
  - BURSITIS [None]
  - DEFORMITY [None]
  - TOOTH ABSCESS [None]
  - FATIGUE [None]
  - DECUBITUS ULCER [None]
  - FALL [None]
  - DEEP VEIN THROMBOSIS [None]
  - LEUKOCYTOSIS [None]
  - TOOTH LOSS [None]
  - NEUROGENIC BLADDER [None]
  - ANAEMIA [None]
  - HAEMATURIA [None]
  - PLEURAL EFFUSION [None]
  - STAPHYLOCOCCAL OSTEOMYELITIS [None]
  - URINARY TRACT INFECTION [None]
  - RADICULOPATHY [None]
